FAERS Safety Report 10368373 (Version 2)
Quarter: 2014Q3

REPORT INFORMATION
  Report Type: Report from Study
  Country: US (occurrence: US)
  Receive Date: 20140807
  Receipt Date: 20140814
  Transmission Date: 20150326
  Serious: Yes (Hospitalization)
  Sender: FDA-Public Use
  Company Number: US-ABBVIE-14K-163-1267020-00

PATIENT
  Age: 42 Year
  Sex: Female
  Weight: 70.37 kg

DRUGS (9)
  1. PROTONIX [Concomitant]
     Active Substance: PANTOPRAZOLE SODIUM
     Indication: CROHN^S DISEASE
  2. HUMIRA [Suspect]
     Active Substance: ADALIMUMAB
     Dates: start: 2009, end: 20140616
  3. EFFEXOR [Concomitant]
     Active Substance: VENLAFAXINE HYDROCHLORIDE
     Indication: PROPHYLAXIS
  4. XANAX [Concomitant]
     Active Substance: ALPRAZOLAM
     Indication: INSOMNIA
  5. EFFEXOR [Concomitant]
     Active Substance: VENLAFAXINE HYDROCHLORIDE
     Indication: ANXIETY
  6. HUMIRA [Suspect]
     Active Substance: ADALIMUMAB
     Dates: start: 20140709, end: 20140709
  7. HUMIRA [Suspect]
     Active Substance: ADALIMUMAB
     Indication: CROHN^S DISEASE
     Dates: start: 2008, end: 2009
  8. HUMIRA [Suspect]
     Active Substance: ADALIMUMAB
     Dosage: ONE WEEK LATER
     Dates: start: 20140716
  9. MULTIVITAMIN [Concomitant]
     Active Substance: VITAMINS
     Indication: VITAMIN SUPPLEMENTATION

REACTIONS (10)
  - Abdominal distension [Recovered/Resolved]
  - Breast reconstruction [Unknown]
  - Diarrhoea [Unknown]
  - Small intestinal obstruction [Recovered/Resolved]
  - Dehydration [Recovered/Resolved]
  - Device issue [Unknown]
  - Joint swelling [Unknown]
  - Enteritis [Recovering/Resolving]
  - Constipation [Recovered/Resolved]
  - Appendicitis [Unknown]

NARRATIVE: CASE EVENT DATE: 2009
